FAERS Safety Report 5080679-4 (Version None)
Quarter: 2006Q3

REPORT INFORMATION
  Report Type: 
  Country: None (occurrence: None)
  Receive Date: 20060809
  Receipt Date: 20060726
  Transmission Date: 20061208
  Serious: Yes (Hospitalization)
  Sender: FDA-Public Use
  Company Number: 2006RR-02977

PATIENT
  Age: 44 Year
  Sex: Male
  Weight: 49.4 kg

DRUGS (6)
  1. AMOXICILLIN + CLAVULANATE POTASSIUM [Suspect]
     Indication: BACTERIAL INFECTION
     Dosage: SEE IMAGE
     Route: 048
     Dates: start: 20040601, end: 20040601
  2. AMOXICILLIN + CLAVULANATE POTASSIUM [Suspect]
     Indication: BACTERIAL INFECTION
     Dosage: SEE IMAGE
     Route: 048
  3. NEOSTIGMINE BROMIDE [Concomitant]
  4. TRIMEBUTINE [Concomitant]
  5. OMEPRAZOLE [Concomitant]
  6. PAROXETINE HCL [Concomitant]

REACTIONS (15)
  - ABDOMINAL DISTENSION [None]
  - ABDOMINAL PAIN [None]
  - ALCOHOL POISONING [None]
  - BLOOD ETHANOL INCREASED [None]
  - CANDIDIASIS [None]
  - CONFUSIONAL STATE [None]
  - DISORIENTATION [None]
  - DRUG INTERACTION [None]
  - DYSARTHRIA [None]
  - ERUCTATION [None]
  - GASTRITIS [None]
  - HEPATIC STEATOSIS [None]
  - MUSCLE ENZYME INCREASED [None]
  - OVERGROWTH BACTERIAL [None]
  - REFLUX OESOPHAGITIS [None]
